FAERS Safety Report 14979657 (Version 1)
Quarter: 2018Q2

REPORT INFORMATION
  Report Type: Spontaneous
  Country: JP (occurrence: JP)
  Receive Date: 20180606
  Receipt Date: 20180606
  Transmission Date: 20180711
  Serious: Yes (Other)
  Sender: FDA-Public Use
  Company Number: JP-PFIZER INC-2018173223

PATIENT
  Age: 76 Year
  Sex: Female

DRUGS (5)
  1. LYRICA [Suspect]
     Active Substance: PREGABALIN
     Indication: PAIN IN EXTREMITY
     Dosage: 50 MG, 2X/DAY
     Route: 048
     Dates: start: 20180319, end: 20180326
  2. NEUROTROPIN [Concomitant]
     Active Substance: NEUROTROPIN
     Dosage: UNK
     Route: 042
  3. SALSOROITIN [Concomitant]
     Dosage: UNK
     Route: 042
  4. ACTONEL [Concomitant]
     Active Substance: RISEDRONATE SODIUM
     Dosage: 17.5 MG, WEEKLY
     Route: 048
     Dates: start: 20141007
  5. LIMAPROST ALFADEX [Suspect]
     Active Substance: LIMAPROST
     Indication: PAIN IN EXTREMITY
     Dosage: 5 UG, 3X/DAY
     Route: 048
     Dates: start: 20180319, end: 20180326

REACTIONS (3)
  - Dizziness [Recovering/Resolving]
  - Pain in extremity [Unknown]
  - Mastoiditis [Recovered/Resolved]

NARRATIVE: CASE EVENT DATE: 20180326
